FAERS Safety Report 8561475-X (Version None)
Quarter: 2012Q3

REPORT INFORMATION
  Report Type: 
  Country: None (occurrence: None)
  Receive Date: 20120802
  Receipt Date: 20120723
  Transmission Date: 20120928
  Serious: Yes (Hospitalization, Other)
  Sender: FDA-Public Use
  Company Number: US-009507513-1204USA01703

PATIENT

DRUGS (1)
  1. FOSAMAX [Suspect]
     Indication: OSTEOPENIA
     Dosage: 70 MG, UNK
     Route: 048
     Dates: start: 20020101, end: 20110601

REACTIONS (45)
  - FALL [None]
  - INTERVERTEBRAL DISC DEGENERATION [None]
  - SYNCOPE [None]
  - IRITIS [None]
  - MUSCULOSKELETAL STIFFNESS [None]
  - ABSCESS [None]
  - HYPOKINESIA [None]
  - ANXIETY [None]
  - DEPRESSION [None]
  - ACQUIRED CLAW TOE [None]
  - MUSCLE SPASMS [None]
  - ILIUM FRACTURE [None]
  - HAEMORRHAGE SUBCUTANEOUS [None]
  - OSTEOPOROSIS [None]
  - EXTRASYSTOLES [None]
  - MYOCARDIAL INFARCTION [None]
  - SKIN WOUND [None]
  - BODY DYSMORPHIC DISORDER [None]
  - BRADYCARDIA [None]
  - WRIST FRACTURE [None]
  - LIMB INJURY [None]
  - CELLULITIS [None]
  - LUNG DISORDER [None]
  - RADICULITIS LUMBOSACRAL [None]
  - LIGAMENT SPRAIN [None]
  - PALPITATIONS [None]
  - CATARACT [None]
  - STRESS [None]
  - MALNUTRITION [None]
  - TOOTH DISORDER [None]
  - ANAEMIA [None]
  - MYOFASCIAL PAIN SYNDROME [None]
  - VITAMIN D DEFICIENCY [None]
  - HAEMANGIOMA OF LIVER [None]
  - UPPER LIMB FRACTURE [None]
  - HYPOGLYCAEMIA [None]
  - FEMUR FRACTURE [None]
  - FEMORAL NECK FRACTURE [None]
  - VIRAL HEPATITIS CARRIER [None]
  - CHOLELITHIASIS [None]
  - OEDEMA PERIPHERAL [None]
  - SKIN FRAGILITY [None]
  - LEUKOPENIA [None]
  - CONTUSION [None]
  - WEIGHT DECREASED [None]
